FAERS Safety Report 13113436 (Version 1)
Quarter: 2017Q1

REPORT INFORMATION
  Report Type: Spontaneous
  Country: US (occurrence: US)
  Receive Date: 20170113
  Receipt Date: 20170113
  Transmission Date: 20170509
  Serious: Yes (Hospitalization)
  Sender: FDA-Public Use
  Company Number: None

PATIENT
  Age: 62 Year
  Sex: Male
  Weight: 113.5 kg

DRUGS (2)
  1. WARFARIN [Suspect]
     Active Substance: WARFARIN
     Indication: ATRIAL FIBRILLATION
     Route: 048
  2. ENOXAPARIN [Suspect]
     Active Substance: ENOXAPARIN
     Route: 058
     Dates: start: 20161115, end: 20161124

REACTIONS (10)
  - Seroma [None]
  - Dyspnoea [None]
  - Haemoglobin decreased [None]
  - Gastric haemorrhage [None]
  - Intra-abdominal fluid collection [None]
  - Haematocrit decreased [None]
  - Anticoagulation drug level above therapeutic [None]
  - Haematoma [None]
  - Haematochezia [None]
  - Infection [None]

NARRATIVE: CASE EVENT DATE: 20161124
